FAERS Safety Report 5385509-9 (Version None)
Quarter: 2007Q3

REPORT INFORMATION
  Report Type: 
  Country: None (occurrence: None)
  Receive Date: 20070712
  Receipt Date: 20070703
  Transmission Date: 20080115
  Serious: Yes (Hospitalization)
  Sender: FDA-Public Use
  Company Number: US-BAXTER-2007BH006106

PATIENT

DRUGS (4)
  1. MITOMYCIN [Suspect]
     Indication: ADENOCARCINOMA PANCREAS
     Route: 042
  2. FLUOROURACIL [Suspect]
     Indication: ADENOCARCINOMA PANCREAS
     Route: 042
  3. DIPYRIDAMOLE [Suspect]
     Indication: ADENOCARCINOMA PANCREAS
     Route: 048
  4. LEUCOVORIN CALCIUM [Suspect]
     Indication: ADENOCARCINOMA PANCREAS
     Route: 042

REACTIONS (1)
  - GASTROINTESTINAL HAEMORRHAGE [None]
